FAERS Safety Report 12366648 (Version 5)
Quarter: 2016Q4

REPORT INFORMATION
  Report Type: Spontaneous
  Country: BE (occurrence: BE)
  Receive Date: 20160513
  Receipt Date: 20161019
  Transmission Date: 20170207
  Serious: Yes (Hospitalization)
  Sender: FDA-Public Use
  Company Number: BE-ASTRAZENECA-2016SE48937

PATIENT
  Sex: Male

DRUGS (1)
  1. SYMBICORT [Suspect]
     Active Substance: BUDESONIDE\FORMOTEROL FUMARATE DIHYDRATE
     Indication: ASTHMA
     Dosage: 160 UG, UNKNOWN FREQUENCY
     Route: 055
     Dates: start: 2010

REACTIONS (7)
  - Asthma [Recovered/Resolved]
  - Device defective [Unknown]
  - Contusion [Recovered/Resolved]
  - Cough [Recovered/Resolved]
  - Coagulopathy [Recovered/Resolved]
  - Rhinorrhoea [Recovered/Resolved]
  - Drug ineffective [Unknown]
